FAERS Safety Report 21137505 (Version 1)
Quarter: 2022Q3

REPORT INFORMATION
  Report Type: Spontaneous
  Country: CA (occurrence: CA)
  Receive Date: 20220727
  Receipt Date: 20220727
  Transmission Date: 20221027
  Serious: Yes (Hospitalization, Other)
  Sender: FDA-Public Use
  Company Number: CA-BAXTER-2022BAX015483

PATIENT
  Age: 6 Year
  Sex: Male
  Weight: 18 kg

DRUGS (10)
  1. CYCLOPHOSPHAMIDE [Suspect]
     Active Substance: CYCLOPHOSPHAMIDE
     Indication: Second primary malignancy
     Dosage: 250 MG/M2,DOSAGE FORM NOT SPECIFIED,INTRAVENOUS(NOT OTHERWISE SPECIFIED)
     Route: 042
  2. TOPOTECAN [Suspect]
     Active Substance: TOPOTECAN HYDROCHLORIDE
     Indication: Second primary malignancy
     Dosage: 0.75 MG/M2,DOSAGE FORM NOT SPECIFIED,INTRAVENOUS(NOT OTHERWISE SPECIFIED)
     Route: 042
  3. VENETOCLAX [Suspect]
     Active Substance: VENETOCLAX
     Indication: Second primary malignancy
     Dosage: 250 MG
     Route: 048
  4. VENETOCLAX [Suspect]
     Active Substance: VENETOCLAX
     Dosage: 120 MG
     Route: 048
  5. VENETOCLAX [Suspect]
     Active Substance: VENETOCLAX
     Dosage: 250 MG
     Route: 065
  6. AMLODIPINE [Concomitant]
     Active Substance: AMLODIPINE BESYLATE
     Indication: Mitral valve prolapse
     Dosage: 10MG
     Route: 048
  7. AMLODIPINE [Concomitant]
     Active Substance: AMLODIPINE BESYLATE
     Indication: Marfan^s syndrome
  8. AMLODIPINE [Concomitant]
     Active Substance: AMLODIPINE BESYLATE
     Indication: Aortic dilatation
  9. HEPARIN [Concomitant]
     Active Substance: HEPARIN SODIUM
     Indication: Ill-defined disorder
     Dosage: INTRAVENOUS(NOT OTHERWISE SPECIFIED)
     Route: 042
  10. SULFAMETHOXAZOLE\TRIMETHOPRIM [Concomitant]
     Active Substance: SULFAMETHOXAZOLE\TRIMETHOPRIM
     Indication: Prophylaxis
     Dosage: DOSAGE FORM NOT SPECIFIED
     Route: 048

REACTIONS (5)
  - Decreased appetite [Recovered/Resolved]
  - Asthenia [Recovered/Resolved]
  - Febrile neutropenia [Recovered/Resolved]
  - Headache [Recovered/Resolved]
  - Pyrexia [Recovered/Resolved]
